FAERS Safety Report 18985671 (Version 1)
Quarter: 2021Q1

REPORT INFORMATION
  Report Type: Report from Study
  Country: None (occurrence: US)
  Receive Date: 20210309
  Receipt Date: 20210309
  Transmission Date: 20210420
  Serious: Yes (Other)
  Sender: FDA-Public Use
  Company Number: US-ABBVIE-21K-163-3800649-00

PATIENT
  Age: 59 Year
  Sex: Female

DRUGS (2)
  1. HUMIRA [Suspect]
     Active Substance: ADALIMUMAB
     Dosage: CITRATE FREE
     Route: 058
  2. HUMIRA [Suspect]
     Active Substance: ADALIMUMAB
     Indication: CROHN^S DISEASE
     Dosage: CITRATE FREE
     Route: 058

REACTIONS (6)
  - Postoperative wound infection [Recovered/Resolved]
  - Post procedural haemorrhage [Recovering/Resolving]
  - Purulent discharge [Recovering/Resolving]
  - Alopecia [Recovered/Resolved]
  - Colostomy closure [Unknown]
  - Achromotrichia acquired [Unknown]

NARRATIVE: CASE EVENT DATE: 20201230
